FAERS Safety Report 7310389-1 (Version None)
Quarter: 2011Q1

REPORT INFORMATION
  Report Type: 
  Country: None (occurrence: None)
  Receive Date: 20110224
  Receipt Date: 20100715
  Transmission Date: 20110831
  Serious: Yes (Hospitalization)
  Sender: FDA-Public Use
  Company Number: US-BRISTOL-MYERS SQUIBB COMPANY-15188998

PATIENT
  Age: 61 Year
  Sex: Male

DRUGS (8)
  1. AVANDAMET [Suspect]
  2. AMITIZA [Concomitant]
  3. AVANDIA [Concomitant]
  4. MIRALAX [Concomitant]
  5. PRILOSEC [Concomitant]
  6. NORVASC [Concomitant]
  7. MAGNESIUM [Concomitant]
  8. METFORMIN HYDROCHLORIDE [Suspect]

REACTIONS (2)
  - ABDOMINAL PAIN [None]
  - DIARRHOEA [None]
